FAERS Safety Report 4870537-X (Version None)
Quarter: 2005Q4

REPORT INFORMATION
  Report Type: 
  Country: None (occurrence: None)
  Receive Date: 20051228
  Receipt Date: 20051213
  Transmission Date: 20060501
  Serious: Yes (Death, Other)
  Sender: FDA-Public Use
  Company Number: 2005-BP-21419RO

PATIENT
  Age: 28 Year
  Sex: Female

DRUGS (4)
  1. CYCLOPHOSPHAMIDE [Suspect]
     Indication: SYSTEMIC LUPUS ERYTHEMATOSUS
     Dosage: 2 MG/KG/DAY STARTING WEEK 20 OF PREGNANCY (SEE TEXT),
  2. METHYLPREDNISOLONE [Concomitant]
  3. PREDNISONE [Concomitant]
  4. AZATHIOPRINE [Concomitant]

REACTIONS (12)
  - BLOOD CREATINE PHOSPHOKINASE INCREASED [None]
  - BLOOD CREATININE INCREASED [None]
  - CONDITION AGGRAVATED [None]
  - DRUG EXPOSURE DURING PREGNANCY [None]
  - HYPERTENSION [None]
  - INTRA-UTERINE DEATH [None]
  - LUPUS NEPHRITIS [None]
  - MICROANGIOPATHIC HAEMOLYTIC ANAEMIA [None]
  - MYOSITIS [None]
  - RASH [None]
  - THROMBOCYTOPENIA [None]
  - VITILIGO [None]
